FAERS Safety Report 4421256-5 (Version None)
Quarter: 2004Q3

REPORT INFORMATION
  Report Type: 
  Country: None (occurrence: None)
  Receive Date: 20040707
  Receipt Date: 20040525
  Transmission Date: 20050211
  Serious: No
  Sender: FDA-Public Use
  Company Number: SU-2004-002397

PATIENT
  Age: 53 Year
  Sex: Female
  Weight: 84.8226 kg

DRUGS (6)
  1. BENICAR HCT [Suspect]
     Indication: HYPERTENSION
     Dosage: 40.125 MG QD PO
     Route: 048
     Dates: start: 20030902, end: 20030916
  2. FAMOTIDINE [Concomitant]
  3. DARVOCET-N 100 [Concomitant]
  4. TYLENOL W/ CODEINE NO. 3 [Concomitant]
  5. ACIPHEX [Concomitant]
  6. ESTRACE [Concomitant]

REACTIONS (2)
  - BLOOD PRESSURE FLUCTUATION [None]
  - PALPITATIONS [None]
